FAERS Safety Report 5892345-3 (Version None)
Quarter: 2008Q3

REPORT INFORMATION
  Report Type: 
  Country: None (occurrence: None)
  Receive Date: 20080922
  Receipt Date: 20080922
  Transmission Date: 20090109
  Serious: No
  Sender: FDA-Public Use
  Company Number: None

PATIENT
  Age: 24 Year
  Sex: Male
  Weight: 90.7194 kg

DRUGS (1)
  1. ANCEF [Suspect]
     Indication: ANTIBIOTIC PROPHYLAXIS
     Dosage: ONE GM X 1 DOSE IV
     Route: 042
     Dates: start: 20080904

REACTIONS (1)
  - THROAT TIGHTNESS [None]
